FAERS Safety Report 5930921-X (Version None)
Quarter: 2008Q4

REPORT INFORMATION
  Report Type: 
  Country: None (occurrence: None)
  Receive Date: 20081027
  Receipt Date: 20081015
  Transmission Date: 20090506
  Serious: Yes (Other)
  Sender: FDA-Public Use
  Company Number: US-BAYER-200836016NA

PATIENT
  Sex: Female

DRUGS (3)
  1. MAGNEVIST [Suspect]
     Indication: NUCLEAR MAGNETIC RESONANCE IMAGING
  2. MULTIHANCE [Suspect]
     Indication: NUCLEAR MAGNETIC RESONANCE IMAGING
  3. PROHANCE [Suspect]

REACTIONS (11)
  - ANXIETY [None]
  - ASTHENIA [None]
  - HYPOAESTHESIA [None]
  - MOBILITY DECREASED [None]
  - MUSCLE TIGHTNESS [None]
  - NEPHROGENIC SYSTEMIC FIBROSIS [None]
  - PAIN [None]
  - PRURITUS GENERALISED [None]
  - SCAR [None]
  - SKIN DISCOLOURATION [None]
  - SKIN TIGHTNESS [None]
